FAERS Safety Report 5641779-0 (Version None)
Quarter: 2008Q1

REPORT INFORMATION
  Report Type: 
  Country: None (occurrence: None)
  Receive Date: 20080131
  Receipt Date: 20071025
  Transmission Date: 20080703
  Serious: Yes (Death)
  Sender: FDA-Public Use
  Company Number: 163-21880-07101497

PATIENT
  Age: 79 Year
  Sex: Male

DRUGS (1)
  1. REVLIMID [Suspect]
     Indication: MULTIPLE MYELOMA
     Dosage: 25 MG, QD X 21 DAYS, ORAL ; 15 MG, 1 IN 1 D, ORAL
     Route: 048
     Dates: start: 20070901, end: 20071001

REACTIONS (3)
  - ASTHENIA [None]
  - DEATH [None]
  - HAEMOGLOBIN DECREASED [None]
